FAERS Safety Report 16417027 (Version 1)
Quarter: 2019Q2

REPORT INFORMATION
  Report Type: Other
  Country: US (occurrence: US)
  Receive Date: 20190611
  Receipt Date: 20190611
  Transmission Date: 20190711
  Serious: No
  Sender: FDA-Public Use
  Company Number: US-AMAG PHARMACEUTICALS, INC.-AMAG201902593

PATIENT
  Age: 40 Year
  Sex: Female

DRUGS (1)
  1. MAKENA [Suspect]
     Active Substance: HYDROXYPROGESTERONE CAPROATE
     Route: 058
     Dates: start: 20190426, end: 20190426

REACTIONS (3)
  - Limb discomfort [Unknown]
  - Pain in extremity [Unknown]
  - Contusion [Unknown]

NARRATIVE: CASE EVENT DATE: 20190426
